FAERS Safety Report 8906751 (Version 1)
Quarter: 2012Q4

REPORT INFORMATION
  Report Type: 
  Country: US (occurrence: US)
  Receive Date: 20121114
  Receipt Date: 20121114
  Transmission Date: 20130627
  Serious: No
  Sender: FDA-Public Use
  Company Number: US-PFIZER INC-2012284032

PATIENT
  Age: 61 Year
  Sex: Female
  Weight: 81.63 kg

DRUGS (4)
  1. LYRICA [Suspect]
     Indication: MUSCLE PAIN
     Dosage: 100 mg in morning and 200mg at night
     Route: 048
     Dates: start: 2008, end: 2012
  2. CYMBALTA [Concomitant]
     Indication: DEPRESSION
     Dosage: 90 mg, daily
  3. CYMBALTA [Concomitant]
     Indication: PAIN
  4. MELOXICAM [Concomitant]
     Indication: LEG DISCOMFORT
     Dosage: 7.5 mg, 2x/day

REACTIONS (4)
  - Influenza [Recovering/Resolving]
  - Nasopharyngitis [Recovering/Resolving]
  - Cough [Recovering/Resolving]
  - Weight decreased [Unknown]
